FAERS Safety Report 10052961 (Version 1)
Quarter: 2014Q2

REPORT INFORMATION
  Report Type: Spontaneous
  Country: US (occurrence: US)
  Receive Date: 20140402
  Receipt Date: 20140402
  Transmission Date: 20141212
  Serious: No
  Sender: FDA-Public Use
  Company Number: US-MALLINCKRODT-T201401125

PATIENT
  Age: 45 Year
  Sex: Male

DRUGS (1)
  1. METHYLPHENIDATE HYDROCHLORIDE EXTENDED RELEASE TABLETS [Suspect]
     Indication: ATTENTION DEFICIT/HYPERACTIVITY DISORDER
     Dosage: 36 MG, UNK
     Route: 065

REACTIONS (4)
  - Feeling abnormal [Recovered/Resolved]
  - Feeling jittery [Recovered/Resolved]
  - Insomnia [Recovered/Resolved]
  - Drug effect decreased [Recovered/Resolved]
